FAERS Safety Report 17128945 (Version 1)
Quarter: 2019Q4

REPORT INFORMATION
  Report Type: Spontaneous
  Country: US (occurrence: US)
  Receive Date: 20191207
  Receipt Date: 20191207
  Transmission Date: 20200122
  Serious: Yes (Other)
  Sender: FDA-Public Use
  Company Number: None

PATIENT
  Age: 62 Year
  Sex: Female
  Weight: 54 kg

DRUGS (9)
  1. NAPROXENE [Concomitant]
     Active Substance: NAPROXEN
  2. PROLIA [Suspect]
     Active Substance: DENOSUMAB
     Indication: OSTEOPOROSIS
     Dosage: ?          QUANTITY:1 INJECTION(S);?
     Route: 058
     Dates: start: 20170310, end: 20170311
  3. VITAMIN B12 [Concomitant]
     Active Substance: CYANOCOBALAMIN
  4. VITAMIN C [Concomitant]
     Active Substance: ASCORBIC ACID
  5. CITRACAL PLUS VIT D3 [Concomitant]
  6. ZINC. [Concomitant]
     Active Substance: ZINC
  7. COQ10 [Concomitant]
     Active Substance: UBIDECARENONE
  8. ESTRADIOL CREME 0.01 % [Concomitant]
  9. COMPLETE MULTIVITAMIN [Concomitant]
     Active Substance: VITAMINS

REACTIONS (7)
  - Vascular injury [None]
  - Rash [None]
  - Injection site pruritus [None]
  - Skin infection [None]
  - Erythema [None]
  - Impaired healing [None]
  - Injection site pain [None]

NARRATIVE: CASE EVENT DATE: 20170710
